FAERS Safety Report 19448928 (Version 4)
Quarter: 2021Q3

REPORT INFORMATION
  Report Type: Report from Study
  Country: US (occurrence: US)
  Receive Date: 20210622
  Receipt Date: 20210902
  Transmission Date: 20211014
  Serious: No
  Sender: FDA-Public Use
  Company Number: NVSC2021US134827

PATIENT
  Sex: Female

DRUGS (1)
  1. MAYZENT [Suspect]
     Active Substance: SIPONIMOD
     Indication: MULTIPLE SCLEROSIS
     Dosage: 2 MG, QD (VIA MOUTH)
     Route: 048

REACTIONS (6)
  - Fatigue [Recovering/Resolving]
  - Dizziness [Recovering/Resolving]
  - Heart rate decreased [Recovering/Resolving]
  - Feeling abnormal [Unknown]
  - Gait disturbance [Recovering/Resolving]
  - Lymphocyte count decreased [Unknown]
